FAERS Safety Report 17761639 (Version 1)
Quarter: 2020Q2

REPORT INFORMATION
  Report Type: Spontaneous
  Country: ES (occurrence: ES)
  Receive Date: 20200508
  Receipt Date: 20200508
  Transmission Date: 20200714
  Serious: Yes (Other)
  Sender: FDA-Public Use
  Company Number: ES-CADILA HEALTHCARE LIMITED-ES-ZYDUS-027252

PATIENT

DRUGS (1)
  1. DONEPEZIL. [Suspect]
     Active Substance: DONEPEZIL
     Indication: DEMENTIA ALZHEIMER^S TYPE
     Dosage: 10 MILLIGRAM,(INTERVAL :24 HOURS)
     Route: 048
     Dates: start: 20170918

REACTIONS (1)
  - Atrial tachycardia [Not Recovered/Not Resolved]

NARRATIVE: CASE EVENT DATE: 20171227
